FAERS Safety Report 5333482-1 (Version None)
Quarter: 2007Q3

REPORT INFORMATION
  Report Type: 
  Country: None (occurrence: None)
  Receive Date: 20070521
  Receipt Date: 20070508
  Transmission Date: 20080115
  Serious: Yes (Hospitalization)
  Sender: FDA-Public Use
  Company Number: 2007BI006899

PATIENT
  Age: 50 Year
  Sex: Female

DRUGS (10)
  1. AVONEX [Suspect]
     Indication: MULTIPLE SCLEROSIS
     Dosage: IM
     Route: 030
  2. AVONEX [Suspect]
     Dosage: 30 UG; QM; IM
     Route: 030
     Dates: start: 20070326
  3. PROVIGIL [Concomitant]
  4. BACLOFEN [Concomitant]
  5. LIPITOR [Concomitant]
  6. NAPROXEN [Concomitant]
  7. LOTREL [Concomitant]
  8. SANCTURA [Concomitant]
  9. WELLBUTRIN [Concomitant]
  10. ATENOLOL [Concomitant]

REACTIONS (3)
  - ASTHENIA [None]
  - CEREBROVASCULAR ACCIDENT [None]
  - HEMIPLEGIA [None]
